FAERS Safety Report 9718610 (Version 1)
Quarter: 2013Q4

REPORT INFORMATION
  Report Type: Spontaneous
  Country: US (occurrence: US)
  Receive Date: 20131125
  Receipt Date: 20131125
  Transmission Date: 20140711
  Serious: No
  Sender: FDA-Public Use
  Company Number: US-VIVUS-2012V1000296

PATIENT
  Age: 47 Year
  Sex: Female
  Weight: 74.91 kg

DRUGS (1)
  1. QSYMIA 3.75MG/23MG [Suspect]
     Indication: WEIGHT DECREASED
     Route: 048
     Dates: start: 20121101

REACTIONS (2)
  - Crying [Recovered/Resolved]
  - Daydreaming [Not Recovered/Not Resolved]
